FAERS Safety Report 5991181-7 (Version None)
Quarter: 2008Q4

REPORT INFORMATION
  Report Type: 
  Country: None (occurrence: None)
  Receive Date: 20081211
  Receipt Date: 20081203
  Transmission Date: 20090506
  Serious: Yes (Hospitalization)
  Sender: FDA-Public Use
  Company Number: DK-JNJFOC-20081201016

PATIENT
  Sex: Male
  Weight: 70 kg

DRUGS (2)
  1. INTELENCE [Suspect]
     Indication: HIV INFECTION
     Route: 048
  2. ISENTRESS [Suspect]
     Indication: HIV INFECTION
     Route: 048

REACTIONS (3)
  - HEPATIC FUNCTION ABNORMAL [None]
  - PYREXIA [None]
  - RASH [None]
